FAERS Safety Report 9668575 (Version 1)
Quarter: 2013Q4

REPORT INFORMATION
  Report Type: Spontaneous
  Country: US (occurrence: US)
  Receive Date: 20131105
  Receipt Date: 20131105
  Transmission Date: 20140711
  Serious: No
  Sender: FDA-Public Use
  Company Number: US-009507513-1310USA009778

PATIENT
  Age: 63 Year
  Sex: Female

DRUGS (4)
  1. PROVENTIL [Suspect]
     Indication: HYPERSENSITIVITY
     Dosage: ONE OR TWO PUFFS A DAY, AS NEEDED
     Route: 055
     Dates: start: 2010
  2. PROVENTIL [Suspect]
     Indication: ASTHMA
  3. SINGULAIR [Concomitant]
     Route: 048
  4. CLARITIN [Concomitant]
     Route: 048

REACTIONS (4)
  - Dyspnoea [Recovered/Resolved]
  - Drug dose omission [Unknown]
  - Product quality issue [Unknown]
  - Inappropriate schedule of drug administration [Unknown]
